FAERS Safety Report 8585650-3 (Version None)
Quarter: 2012Q3

REPORT INFORMATION
  Report Type: 
  Country: None (occurrence: None)
  Receive Date: 20120802
  Receipt Date: 20120802
  Transmission Date: 20120928
  Serious: Yes (Hospitalization)
  Sender: FDA-Public Use
  Company Number: None

PATIENT
  Age: 56 Year
  Sex: Female
  Weight: 63.7 kg

DRUGS (10)
  1. M.V.I. [Concomitant]
  2. VITAMINS C AND D [Concomitant]
  3. FISH OIL [Concomitant]
  4. DASATINIB [Suspect]
     Indication: NON-SMALL CELL LUNG CANCER
     Dosage: 100MG PO DAILY
     Route: 048
     Dates: start: 20120621, end: 20120727
  5. NIACIN [Concomitant]
  6. MELATONIN [Concomitant]
  7. GLUCOSAMINE [Concomitant]
  8. IODINE [Concomitant]
  9. VICODIN [Concomitant]
  10. ALPHA LIPOIC ACID [Concomitant]

REACTIONS (2)
  - HAEMOPTYSIS [None]
  - PLEURAL EFFUSION [None]
